FAERS Safety Report 6017687-2 (Version None)
Quarter: 2008Q4

REPORT INFORMATION
  Report Type: 
  Country: None (occurrence: None)
  Receive Date: 20081223
  Receipt Date: 20081211
  Transmission Date: 20090506
  Serious: Yes (Death, Other)
  Sender: FDA-Public Use
  Company Number: US-ROCHE-602664

PATIENT
  Age: 15 Year
  Sex: Female

DRUGS (1)
  1. OSELTAMIVIR [Suspect]
     Route: 065

REACTIONS (4)
  - DEATH [None]
  - HYPOTENSION [None]
  - PNEUMONIA NECROTISING [None]
  - PULMONARY ALVEOLAR HAEMORRHAGE [None]
